FAERS Safety Report 6991403-X (Version None)
Quarter: 2010Q3

REPORT INFORMATION
  Report Type: 
  Country: None (occurrence: None)
  Receive Date: 20100916
  Receipt Date: 20090815
  Transmission Date: 20110219
  Serious: No
  Sender: FDA-Public Use
  Company Number: US-WYE-H10627009

PATIENT
  Sex: Male

DRUGS (2)
  1. TORISEL [Suspect]
     Indication: RENAL CELL CARCINOMA
     Route: 042
  2. DIPHENHYDRAMINE HCL [Suspect]
     Indication: ALLERGY PROPHYLAXIS
     Dosage: NOT PROVIDED

REACTIONS (1)
  - FATIGUE [None]
